FAERS Safety Report 4283197-6 (Version None)
Quarter: 2004Q1

REPORT INFORMATION
  Report Type: 
  Country: None (occurrence: None)
  Receive Date: 20040129
  Receipt Date: 20040120
  Transmission Date: 20041129
  Serious: Yes (Other)
  Sender: FDA-Public Use
  Company Number: 2003033233

PATIENT
  Age: 54 Year
  Sex: Male

DRUGS (2)
  1. RELPAX [Suspect]
     Indication: MIGRAINE
     Dosage: 40 MG (DAILY)
     Dates: start: 20030702
  2. CAFFEINE (CAFFEINE) [Suspect]
     Indication: ILL-DEFINED DISORDER

REACTIONS (3)
  - CHEST PAIN [None]
  - FATIGUE [None]
  - TACHYARRHYTHMIA [None]
